FAERS Safety Report 8929092 (Version 2)
Quarter: 2012Q4

REPORT INFORMATION
  Report Type: 
  Country: US (occurrence: US)
  Receive Date: 20121127
  Receipt Date: 20121204
  Transmission Date: 20130627
  Serious: No
  Sender: FDA-Public Use
  Company Number: US-BAYER-2012-123603

PATIENT
  Age: 76 Year
  Sex: Female
  Weight: 57 kg

DRUGS (8)
  1. ALEVE LIQUID GELS [Suspect]
     Dosage: UNK
     Route: 048
  2. ALEVE GELCAP [Suspect]
     Indication: BACK ACHE
     Dosage: UNK
     Route: 048
     Dates: start: 2011
  3. ALEVE CAPLET/TABLET,MIDOL EXTENDED RELIEF CAPLET [Suspect]
     Route: 048
  4. ESTROGEN [Concomitant]
  5. ULTRAM [Concomitant]
  6. DIURETICS [Concomitant]
  7. THYROID PREPARATIONS [Concomitant]
  8. ANTIHYPERTENSIVES [Concomitant]

REACTIONS (6)
  - Abdominal discomfort [None]
  - Incorrect drug administration duration [None]
  - Overdose [None]
  - Dyspepsia [None]
  - Blood pressure increased [None]
  - Incorrect drug administration duration [None]
